FAERS Safety Report 5682967-7 (Version None)
Quarter: 2008Q1

REPORT INFORMATION
  Report Type: 
  Country: None (occurrence: None)
  Receive Date: 20080327
  Receipt Date: 20080317
  Transmission Date: 20080703
  Serious: Yes (Life-Threatening)
  Sender: FDA-Public Use
  Company Number: US-MERCK-0802USA02251

PATIENT
  Age: 48 Year
  Sex: Male

DRUGS (1)
  1. PRINIVIL [Suspect]
     Indication: HYPERTENSION
     Route: 065
     Dates: start: 20060203, end: 20061130

REACTIONS (1)
  - LIP SWELLING [None]
